FAERS Safety Report 14367448 (Version 1)
Quarter: 2018Q1

REPORT INFORMATION
  Report Type: Spontaneous
  Country: UG (occurrence: UG)
  Receive Date: 20180109
  Receipt Date: 20180109
  Transmission Date: 20180509
  Serious: Yes (Death, Hospitalization, Other)
  Sender: FDA-Public Use
  Company Number: UG-ASTELLAS-2018US001605

PATIENT
  Age: 50 Year
  Sex: Male

DRUGS (15)
  1. FLUCONAZOLE. [Suspect]
     Active Substance: FLUCONAZOLE
     Dosage: 400 MG, ONCE DAILY (DURATION 70 DAYS)
     Route: 065
  2. AMPHOTERICIN B, LIPOSOME [Suspect]
     Active Substance: AMPHOTERICIN B
     Indication: MENINGITIS CRYPTOCOCCAL
     Dosage: 10 DOSES,, UNKNOWN FREQ.
     Route: 065
  3. TENOFOVIR DISOPROXIL FUMARATE. [Suspect]
     Active Substance: TENOFOVIR DISOPROXIL FUMARATE
     Indication: HIV INFECTION
     Dosage: UNK, UNKNOWN FREQ.
     Route: 065
  4. ABACAVIR. [Concomitant]
     Active Substance: ABACAVIR
     Indication: PRODUCT USED FOR UNKNOWN INDICATION
     Dosage: UNK UNK, UNKNOWN FREQ.
     Route: 065
  5. AMPHOTERICIN B, LIPOSOME [Suspect]
     Active Substance: AMPHOTERICIN B
     Dosage: 14 DOSES, UNKNOWN FREQ.
     Route: 065
  6. AMPHOTERICIN B, LIPOSOME [Suspect]
     Active Substance: AMPHOTERICIN B
     Dosage: 14 DOSES, UNKNOWN FREQ.
     Route: 065
  7. FLUCONAZOLE. [Suspect]
     Active Substance: FLUCONAZOLE
     Indication: MENINGITIS CRYPTOCOCCAL
     Dosage: 400 MG, ONCE DAILY (DURATION 14 DAYS)
     Route: 065
  8. LAMIVUDINE. [Concomitant]
     Active Substance: LAMIVUDINE
     Indication: PRODUCT USED FOR UNKNOWN INDICATION
     Dosage: UNK UNK, UNKNOWN FREQ.
     Route: 065
  9. ATAZANAVIR W/RITONAVIR [Concomitant]
     Active Substance: ATAZANAVIR\RITONAVIR
     Indication: PRODUCT USED FOR UNKNOWN INDICATION
     Dosage: UNK UNK, UNKNOWN FREQ.
     Route: 065
  10. AMPHOTERICIN B, LIPOSOME [Suspect]
     Active Substance: AMPHOTERICIN B
     Dosage: 3 DOSES, UNKNOWN FREQ.
     Route: 065
  11. FLUCONAZOLE. [Suspect]
     Active Substance: FLUCONAZOLE
     Route: 065
  12. FLUCONAZOLE. [Suspect]
     Active Substance: FLUCONAZOLE
     Route: 065
  13. AMPHOTERICIN B, LIPOSOME [Suspect]
     Active Substance: AMPHOTERICIN B
     Dosage: 8 DOSES, UNKNOWN FREQ.
     Route: 065
  14. FLUCONAZOLE. [Suspect]
     Active Substance: FLUCONAZOLE
     Dosage: 800 MG, ONCE DAILY (DURATION 30 DAYS)
     Route: 065
  15. FLUCONAZOLE. [Suspect]
     Active Substance: FLUCONAZOLE
     Route: 065

REACTIONS (5)
  - Pneumonia [Fatal]
  - Sepsis [Fatal]
  - Meningitis cryptococcal [Recovered/Resolved]
  - Immune reconstitution inflammatory syndrome [Fatal]
  - Virologic failure [Unknown]
